FAERS Safety Report 10077182 (Version 1)
Quarter: 2014Q2

REPORT INFORMATION
  Report Type: Spontaneous
  Country: US (occurrence: US)
  Receive Date: 20140414
  Receipt Date: 20140414
  Transmission Date: 20141212
  Serious: Yes (Hospitalization)
  Sender: FDA-Public Use
  Company Number: US-ASTRAZENECA-2014SE22355

PATIENT
  Age: 124 Day
  Sex: Male
  Weight: 5.6 kg

DRUGS (3)
  1. SYNAGIS [Suspect]
     Indication: PREMATURE BABY
     Dosage: 0.66 ML, 100 MG/ML, 15 MG/KG ONCE A MONTH
     Route: 030
     Dates: start: 20140120
  2. POLYVITAMIN DRO/IRON [Concomitant]
  3. SIMPLY SALIN AER BABY [Concomitant]

REACTIONS (2)
  - Respiratory syncytial virus test positive [Unknown]
  - Vomiting [Unknown]
